FAERS Safety Report 9298635 (Version 3)
Quarter: 2013Q2

REPORT INFORMATION
  Report Type: Spontaneous
  Country: JP (occurrence: JP)
  Receive Date: 20130520
  Receipt Date: 20130621
  Transmission Date: 20140414
  Serious: Yes (Hospitalization)
  Sender: FDA-Public Use
  Company Number: JP-ASTRAZENECA-2013SE21290

PATIENT
  Age: 82 Year
  Sex: Female
  Weight: 50 kg

DRUGS (8)
  1. CRESTOR [Suspect]
     Indication: HYPERLIPIDAEMIA
     Route: 048
     Dates: start: 20130131, end: 20130131
  2. FEBURIC [Concomitant]
     Indication: HYPERURICAEMIA
     Route: 048
     Dates: start: 20121019
  3. MICARDIS [Concomitant]
     Indication: HYPERTENSION
     Route: 048
     Dates: start: 20130131
  4. FLUITRAN [Concomitant]
     Indication: HYPERTENSION
     Route: 048
     Dates: start: 20130131
  5. NITOROL R [Concomitant]
     Indication: MYOCARDIAL ISCHAEMIA
     Route: 048
     Dates: start: 20040218
  6. RIZE [Concomitant]
     Indication: ANXIETY DISORDER
     Route: 048
     Dates: start: 20070312
  7. NAUZELIN [Concomitant]
     Indication: GASTRITIS
     Route: 048
     Dates: start: 20090825
  8. MAGNESIUM OXIDE [Concomitant]
     Indication: CONSTIPATION
     Route: 048
     Dates: start: 20040218

REACTIONS (6)
  - Pyelonephritis [Recovered/Resolved]
  - Rhabdomyolysis [Recovered/Resolved]
  - Pyrexia [Unknown]
  - Chromaturia [Unknown]
  - Haematuria [Unknown]
  - Myalgia [Unknown]
